FAERS Safety Report 15318763 (Version 1)
Quarter: 2018Q3

REPORT INFORMATION
  Report Type: Spontaneous
  Country: US (occurrence: US)
  Receive Date: 20180818
  Receipt Date: 20180818
  Transmission Date: 20181010
  Serious: Yes (Disabling)
  Sender: FDA-Public Use
  Company Number: None

PATIENT
  Age: 51 Year
  Sex: Female
  Weight: 98.55 kg

DRUGS (3)
  1. CARVEDILOL. [Concomitant]
     Active Substance: CARVEDILOL
  2. CLONIDINE 0.1MG TABLETS [Suspect]
     Active Substance: CLONIDINE
     Indication: BLOOD PRESSURE MEASUREMENT
     Dosage: ?          QUANTITY:1 TABLET(S);?
     Route: 048
     Dates: start: 20171111, end: 20180818
  3. IBUPROFEN. [Concomitant]
     Active Substance: IBUPROFEN

REACTIONS (10)
  - Pruritus [None]
  - Muscle tightness [None]
  - Tongue ulceration [None]
  - Rash [None]
  - Blepharospasm [None]
  - Malaise [None]
  - Fatigue [None]
  - Feeling cold [None]
  - Acne [None]
  - Rash pruritic [None]

NARRATIVE: CASE EVENT DATE: 20180806
